FAERS Safety Report 9030849 (Version 1)
Quarter: 2013Q1

REPORT INFORMATION
  Report Type: Spontaneous
  Country: AU (occurrence: AU)
  Receive Date: 20130123
  Receipt Date: 20130123
  Transmission Date: 20140127
  Serious: Yes (Hospitalization)
  Sender: FDA-Public Use
  Company Number: AU-ROCHE-1182071

PATIENT
  Age: 83 Year
  Sex: Male

DRUGS (6)
  1. MEFLOQUINE HYDROCHLORIDE [Suspect]
     Indication: PROPHYLAXIS
     Route: 048
     Dates: start: 20120128
  2. CIPROFLOXACIN [Suspect]
     Indication: DIARRHOEA
     Route: 048
     Dates: start: 20121103, end: 20121105
  3. ASPIRIN [Concomitant]
  4. DIGOXIN [Concomitant]
     Indication: ARRHYTHMIA
  5. FLECAINIDE ACETATE [Concomitant]
     Indication: ARRHYTHMIA
  6. PRAZOSIN HYDROCHLORIDE [Concomitant]

REACTIONS (5)
  - Renal failure acute [Not Recovered/Not Resolved]
  - Muscle twitching [Not Recovered/Not Resolved]
  - Urine output decreased [Not Recovered/Not Resolved]
  - Toxicity to various agents [Not Recovered/Not Resolved]
  - Rash [Not Recovered/Not Resolved]
